FAERS Safety Report 4749191-3 (Version None)
Quarter: 2005Q3

REPORT INFORMATION
  Report Type: 
  Country: None (occurrence: None)
  Receive Date: 20050817
  Receipt Date: 20050801
  Transmission Date: 20060218
  Serious: Yes (Death, Hospitalization)
  Sender: FDA-Public Use
  Company Number: 20050803523

PATIENT
  Age: 45 Year
  Sex: Female

DRUGS (2)
  1. DOXORUBICIN HCL [Suspect]
     Indication: BREAST CANCER METASTATIC
     Dosage: 30 MG /M2
     Dates: start: 20021201, end: 20030201
  2. DOCETAXEL [Suspect]
     Indication: BREAST CANCER METASTATIC
     Dosage: 75 MG/M2
     Dates: start: 20021201, end: 20030201

REACTIONS (11)
  - ALOPECIA [None]
  - BREAST CANCER [None]
  - DRUG INTERACTION POTENTIATION [None]
  - GENERALISED ERYTHEMA [None]
  - HEMIPLEGIA [None]
  - HYPERSENSITIVITY [None]
  - METASTASES TO CENTRAL NERVOUS SYSTEM [None]
  - METASTASES TO SKIN [None]
  - NEUTROPENIA [None]
  - PALMAR-PLANTAR ERYTHRODYSAESTHESIA SYNDROME [None]
  - RESPIRATORY DISORDER [None]
